FAERS Safety Report 7411103-1 (Version None)
Quarter: 2011Q2

REPORT INFORMATION
  Report Type: 
  Country: None (occurrence: None)
  Receive Date: 20110413
  Receipt Date: 20100203
  Transmission Date: 20111010
  Serious: Yes (Hospitalization)
  Sender: FDA-Public Use
  Company Number: US-BRISTOL-MYERS SQUIBB COMPANY-14953897

PATIENT
  Age: 56 Year
  Sex: Female
  Weight: 69 kg

DRUGS (7)
  1. ERBITUX [Suspect]
     Indication: COLON CANCER STAGE IV
     Dosage: 09C00207,EXP DATE:30FEB2010
     Route: 042
     Dates: start: 20100127
  2. CAMPTOSAR [Suspect]
     Indication: COLON CANCER STAGE IV
  3. FLUOROURACIL [Suspect]
     Indication: COLON CANCER STAGE IV
  4. LEUCOVORIN [Suspect]
     Indication: COLON CANCER STAGE IV
  5. ALOXI [Concomitant]
     Indication: PREMEDICATION
  6. BENADRYL [Concomitant]
     Indication: PREMEDICATION
  7. EMEND [Concomitant]
     Indication: PREMEDICATION

REACTIONS (7)
  - LOSS OF CONSCIOUSNESS [None]
  - CANDIDIASIS [None]
  - PRURITUS [None]
  - WHEEZING [None]
  - HYPERHIDROSIS [None]
  - PALLOR [None]
  - PALPITATIONS [None]
